FAERS Safety Report 7282179-X (Version None)
Quarter: 2011Q1

REPORT INFORMATION
  Report Type: 
  Country: None (occurrence: None)
  Receive Date: 20110209
  Receipt Date: 20110131
  Transmission Date: 20110831
  Serious: Yes (Other)
  Sender: FDA-Public Use
  Company Number: US-BIOGENIDEC-2010BI018365

PATIENT
  Age: 36 Year
  Sex: Female

DRUGS (4)
  1. TYSABRI [Suspect]
     Indication: MULTIPLE SCLEROSIS
     Route: 042
     Dates: start: 20080506, end: 20091014
  2. PEPCID [Concomitant]
     Indication: DYSPEPSIA
     Route: 048
  3. TYSABRI [Suspect]
     Route: 042
     Dates: start: 20091118, end: 20100310
  4. PRENATAL VITAMINS [Concomitant]

REACTIONS (2)
  - BREECH PRESENTATION [None]
  - PREGNANCY [None]
